FAERS Safety Report 21770785 (Version 2)
Quarter: 2023Q1

REPORT INFORMATION
  Report Type: Spontaneous
  Country: JP (occurrence: JP)
  Receive Date: 20221223
  Receipt Date: 20230124
  Transmission Date: 20230418
  Serious: Yes (Other)
  Sender: FDA-Public Use
  Company Number: JP-TEVA-2022-JP-2839277

PATIENT
  Age: 8 Decade
  Sex: Male

DRUGS (3)
  1. AZILECT [Suspect]
     Active Substance: RASAGILINE MESYLATE
     Indication: Product used for unknown indication
     Route: 065
  2. LEVODOPA [Concomitant]
     Active Substance: LEVODOPA
     Indication: Product used for unknown indication
     Route: 065
  3. ZONISAMIDE [Concomitant]
     Active Substance: ZONISAMIDE
     Indication: Product used for unknown indication
     Route: 065

REACTIONS (1)
  - Sudden onset of sleep [Recovered/Resolved]
